FAERS Safety Report 18667644 (Version 3)
Quarter: 2020Q4

REPORT INFORMATION
  Report Type: Spontaneous
  Country: US (occurrence: US)
  Receive Date: 20201228
  Receipt Date: 20201228
  Transmission Date: 20210114
  Serious: Yes (Death)
  Sender: FDA-Public Use
  Company Number: US-CELGENEUS-USA-20201207674

PATIENT
  Sex: Male

DRUGS (1)
  1. REVLIMID [Suspect]
     Active Substance: LENALIDOMIDE
     Indication: PLASMA CELL MYELOMA
     Dosage: 10 MILLIGRAM
     Route: 048
     Dates: start: 20200204, end: 20201122

REACTIONS (3)
  - COVID-19 pneumonia [Fatal]
  - Staphylococcal bacteraemia [Fatal]
  - Enterococcal bacteraemia [Fatal]

NARRATIVE: CASE EVENT DATE: 2020
